FAERS Safety Report 5858073-5 (Version None)
Quarter: 2008Q3

REPORT INFORMATION
  Report Type: 
  Country: None (occurrence: None)
  Receive Date: 20080818
  Receipt Date: 20080429
  Transmission Date: 20090109
  Serious: No
  Sender: FDA-Public Use
  Company Number: TPA2008A00588

PATIENT
  Age: 73 Year
  Sex: Female

DRUGS (8)
  1. ROZEREM [Suspect]
     Dosage: PER ORAL
     Route: 048
  2. ELMIRON [Concomitant]
  3. SYNTHROID [Concomitant]
  4. MOBIC [Concomitant]
  5. ATARAX (ALL OTHER THERAPEUTIC PRODUCTS) [Concomitant]
  6. FLONASE [Concomitant]
  7. ALLEGRA [Concomitant]
  8. FOSAMAX [Concomitant]

REACTIONS (1)
  - DRUG INEFFECTIVE [None]
